FAERS Safety Report 9596130 (Version 2)
Quarter: 2013Q4

REPORT INFORMATION
  Report Type: Spontaneous
  Country: US (occurrence: US)
  Receive Date: 20131004
  Receipt Date: 20131004
  Transmission Date: 20140711
  Serious: No
  Sender: FDA-Public Use
  Company Number: US-MYLANLABS-2012S1022263

PATIENT
  Age: 33 Year
  Sex: Male
  Weight: 104.33 kg

DRUGS (1)
  1. CLINDAMYCIN/BENZOYL PEROXIDE GEL [Suspect]
     Indication: ACNE
     Route: 061
     Dates: start: 20121022

REACTIONS (1)
  - Application site exfoliation [Not Recovered/Not Resolved]
